FAERS Safety Report 19444381 (Version 1)
Quarter: 2021Q2

REPORT INFORMATION
  Report Type: Spontaneous
  Country: JP (occurrence: JP)
  Receive Date: 20210621
  Receipt Date: 20210621
  Transmission Date: 20210717
  Serious: Yes (Death, Other)
  Sender: FDA-Public Use
  Company Number: JP-ASTRAZENECA-2019SE93617

PATIENT
  Age: 18896 Day
  Sex: Female
  Weight: 54 kg

DRUGS (3)
  1. LYNPARZA [Suspect]
     Active Substance: OLAPARIB
     Indication: BREAST CANCER FEMALE
     Route: 048
     Dates: start: 20190108, end: 20190401
  2. LYNPARZA [Suspect]
     Active Substance: OLAPARIB
     Indication: BREAST CANCER FEMALE
     Route: 048
     Dates: start: 20190214, end: 20190303
  3. LYNPARZA [Suspect]
     Active Substance: OLAPARIB
     Indication: BREAST CANCER FEMALE
     Dosage: 5?DAY ON, 2?DAY OFF300.0MG UNKNOWN
     Route: 048
     Dates: start: 20190304, end: 20200107

REACTIONS (5)
  - Feeding disorder [Unknown]
  - Anaemia [Recovered/Resolved]
  - Stomatitis [Unknown]
  - Neutropenia [Unknown]
  - Glossitis [Unknown]

NARRATIVE: CASE EVENT DATE: 20190401
